FAERS Safety Report 22662541 (Version 3)
Quarter: 2023Q4

REPORT INFORMATION
  Report Type: Report from Study
  Country: CA (occurrence: CA)
  Receive Date: 20230701
  Receipt Date: 20231224
  Transmission Date: 20240110
  Serious: Yes (Other)
  Sender: FDA-Public Use
  Company Number: CA-JNJFOC-20230662532

PATIENT
  Age: 78 Year
  Sex: Female

DRUGS (3)
  1. SIMPONI [Suspect]
     Active Substance: GOLIMUMAB
     Indication: Rheumatoid arthritis
     Route: 058
     Dates: start: 20230608
  2. PREDNISONE [Concomitant]
     Active Substance: PREDNISONE
     Dates: end: 20230620
  3. ADVIL [Concomitant]
     Active Substance: IBUPROFEN
     Dates: start: 20230621

REACTIONS (7)
  - Cardiac pacemaker insertion [Unknown]
  - Hypertension [Recovered/Resolved]
  - Paraesthesia [Unknown]
  - Oropharyngeal pain [Unknown]
  - Contusion [Unknown]
  - Rash [Unknown]
  - Nasal congestion [Unknown]

NARRATIVE: CASE EVENT DATE: 20230610
